FAERS Safety Report 8614030-7 (Version None)
Quarter: 2012Q3

REPORT INFORMATION
  Report Type: 
  Country: None (occurrence: None)
  Receive Date: 20120810
  Receipt Date: 20120810
  Transmission Date: 20120928
  Serious: No
  Sender: FDA-Public Use
  Company Number: None

PATIENT
  Age: 48 Year
  Sex: Female
  Weight: 58.9676 kg

DRUGS (1)
  1. ALLUMERA PHOTOCURE [Suspect]
     Indication: SKIN DISORDER
     Dosage: 1 1 TOP
     Route: 061

REACTIONS (3)
  - PAIN [None]
  - BLISTER [None]
  - SKIN EXFOLIATION [None]
